FAERS Safety Report 14764569 (Version 1)
Quarter: 2018Q2

REPORT INFORMATION
  Report Type: Spontaneous
  Country: AU (occurrence: AU)
  Receive Date: 20180416
  Receipt Date: 20180416
  Transmission Date: 20180711
  Serious: Yes (Other)
  Sender: FDA-Public Use
  Company Number: AU-009507513-1804AUS003984

PATIENT
  Sex: Female

DRUGS (1)
  1. SUVOREXANT. [Suspect]
     Active Substance: SUVOREXANT
     Dosage: 20 MILLIGRAM, DAILY (1 TABLET DAILY)
     Dates: start: 20170720, end: 20170720

REACTIONS (2)
  - Nightmare [Recovered/Resolved]
  - Paraesthesia [Recovered/Resolved]

NARRATIVE: CASE EVENT DATE: 20170720
